FAERS Safety Report 8884025 (Version 2)
Quarter: 2013Q2

REPORT INFORMATION
  Report Type: Spontaneous
  Country: US (occurrence: US)
  Receive Date: 20121104
  Receipt Date: 20130417
  Transmission Date: 20140414
  Serious: No
  Sender: FDA-Public Use
  Company Number: US-ASTRAZENECA-2012SE81156

PATIENT
  Age: 42 Year
  Sex: Female

DRUGS (9)
  1. NEXIUM [Suspect]
     Indication: GASTROOESOPHAGEAL REFLUX DISEASE
     Route: 048
     Dates: start: 2011, end: 201302
  2. TUMS [Concomitant]
  3. LORATABS [Concomitant]
     Indication: FIBROMYALGIA
  4. LAMICTAL [Concomitant]
     Indication: BIPOLAR DISORDER
  5. DEPAKOTE [Concomitant]
     Indication: BIPOLAR DISORDER
  6. ESTRADIOL [Concomitant]
     Indication: HORMONE LEVEL ABNORMAL
  7. SYNTHROID [Concomitant]
     Indication: THYROID DISORDER
  8. XANAX [Concomitant]
     Indication: ANXIETY
  9. OVER THE COUNTER DRUGS [Concomitant]

REACTIONS (12)
  - Dyspepsia [Unknown]
  - Sleep disorder due to a general medical condition [Unknown]
  - Gastrooesophageal reflux disease [Unknown]
  - Fibromyalgia [Unknown]
  - Anxiety [Unknown]
  - Thyroid disorder [Unknown]
  - Bipolar disorder [Unknown]
  - Drug withdrawal syndrome [Unknown]
  - Pain [Unknown]
  - Depression [Unknown]
  - Malaise [Unknown]
  - Drug dose omission [Unknown]
